FAERS Safety Report 24610495 (Version 6)
Quarter: 2025Q3

REPORT INFORMATION
  Report Type: Report from Study
  Country: US (occurrence: US)
  Receive Date: 20241112
  Receipt Date: 20250910
  Transmission Date: 20251021
  Serious: Yes (Hospitalization)
  Sender: SUNOVION
  Company Number: US-SUMITOMO PHARMA SWITZERLAND GMBH-2024SPA004812

PATIENT
  Age: 89 Year
  Sex: Male

DRUGS (26)
  1. ORGOVYX [Suspect]
     Active Substance: RELUGOLIX
     Indication: Prostate cancer
     Dosage: 360 MG, SINGLE
     Route: 048
     Dates: start: 2023, end: 2023
  2. ORGOVYX [Suspect]
     Active Substance: RELUGOLIX
     Dosage: 120 MG, QD
     Route: 048
     Dates: start: 2023
  3. NUBEQA [Suspect]
     Active Substance: DAROLUTAMIDE
     Indication: Prostate cancer
     Dosage: 600 MG, BID
  4. OXYCODONE [Concomitant]
     Active Substance: OXYCODONE
  5. ACETAMINOPHEN [Concomitant]
     Active Substance: ACETAMINOPHEN
  6. ALENDRONATE SODIUM [Concomitant]
     Active Substance: ALENDRONATE SODIUM
  7. ALLOPURINOL [Concomitant]
     Active Substance: ALLOPURINOL
  8. ANORO ELLIPTA [Concomitant]
     Active Substance: UMECLIDINIUM BROMIDE\VILANTEROL TRIFENATATE
  9. BACLOFEN [Concomitant]
     Active Substance: BACLOFEN
  10. BREO ELLIPTA [Concomitant]
     Active Substance: FLUTICASONE FUROATE\VILANTEROL TRIFENATATE
  11. COLCHICINE [Concomitant]
     Active Substance: COLCHICINE
  12. COMBIVENT RESPIMAT [Concomitant]
     Active Substance: ALBUTEROL SULFATE\IPRATROPIUM BROMIDE
  13. DICLOFENAC POTASSIUM [Concomitant]
     Active Substance: DICLOFENAC POTASSIUM
  14. POTASSIUM [Concomitant]
     Active Substance: POTASSIUM
  15. FUROSEMIDE [Concomitant]
     Active Substance: FUROSEMIDE
  16. LEVEMIR [Concomitant]
     Active Substance: INSULIN DETEMIR
  17. LISINOPRIL [Concomitant]
     Active Substance: LISINOPRIL
  18. METFORMIN HYDROCHLORIDE [Concomitant]
     Active Substance: METFORMIN HYDROCHLORIDE
  19. OMEPRAZOLE [Concomitant]
     Active Substance: OMEPRAZOLE
  20. PRAVASTATIN SODIUM [Concomitant]
     Active Substance: PRAVASTATIN SODIUM
  21. TAMSULOSIN [Concomitant]
     Active Substance: TAMSULOSIN
  22. TRIAMCINOLONE ACETONIDE [Concomitant]
     Active Substance: TRIAMCINOLONE ACETONIDE
  23. METHOCARBAMOL [Concomitant]
     Active Substance: METHOCARBAMOL
  24. Codeine cough syrup hk [Concomitant]
     Indication: Cough
  25. TYLENOL [Concomitant]
     Active Substance: ACETAMINOPHEN
  26. LASIX [Concomitant]
     Active Substance: FUROSEMIDE

REACTIONS (6)
  - Cholelithiasis [Unknown]
  - Cough [Unknown]
  - Nasopharyngitis [Unknown]
  - Nasal congestion [Unknown]
  - Muscle spasms [Unknown]
  - Hot flush [Unknown]
